FAERS Safety Report 7138502-X (Version None)
Quarter: 2010Q4

REPORT INFORMATION
  Report Type: 
  Country: None (occurrence: None)
  Receive Date: 20101201
  Receipt Date: 20101201
  Transmission Date: 20110411
  Serious: Yes (Life-Threatening, Hospitalization)
  Sender: FDA-Public Use
  Company Number: None

PATIENT
  Age: 34 Year
  Sex: Male
  Weight: 91.173 kg

DRUGS (1)
  1. LIPITOR [Suspect]
     Indication: HYPERCHOLESTEROLAEMIA
     Dosage: 10MG DAILY PO
     Route: 048

REACTIONS (11)
  - APRAXIA [None]
  - ASTHENIA [None]
  - ATAXIA [None]
  - CENTRAL NERVOUS SYSTEM LESION [None]
  - CONFUSIONAL STATE [None]
  - DISORIENTATION [None]
  - FATIGUE [None]
  - HEADACHE [None]
  - INCONTINENCE [None]
  - MULTIPLE SCLEROSIS [None]
  - PAIN IN EXTREMITY [None]
